FAERS Safety Report 5643774-4 (Version None)
Quarter: 2008Q1

REPORT INFORMATION
  Report Type: 
  Country: None (occurrence: None)
  Receive Date: 20080226
  Receipt Date: 20080215
  Transmission Date: 20080703
  Serious: Yes (Death, Life-Threatening, Other)
  Sender: FDA-Public Use
  Company Number: 45356

PATIENT
  Age: 8 Month
  Sex: Female
  Weight: 6 kg

DRUGS (1)
  1. ETOMIDATE [Suspect]
     Indication: SEDATION
     Dosage: 2MG/IV
     Route: 042

REACTIONS (4)
  - BLOOD PRESSURE DECREASED [None]
  - HEART RATE INCREASED [None]
  - OXYGEN SATURATION DECREASED [None]
  - VENTRICULAR FIBRILLATION [None]
